FAERS Safety Report 6389849-6 (Version None)
Quarter: 2009Q4

REPORT INFORMATION
  Report Type: 
  Country: None (occurrence: None)
  Receive Date: 20091006
  Receipt Date: 20081014
  Transmission Date: 20100525
  Serious: No
  Sender: FDA-Public Use
  Company Number: US-BRISTOL-MYERS SQUIBB COMPANY-14371082

PATIENT
  Age: 61 Year
  Sex: Male

DRUGS (8)
  1. AVAPRO [Suspect]
     Indication: HYPERTENSION
     Dosage: 1 DOSEAGE FORM = 300.
  2. LISINOPRIL [Suspect]
  3. GLUCOPHAGE [Concomitant]
  4. GLIPIZIDE [Concomitant]
  5. PLAVIX [Concomitant]
  6. METOPROLOL [Concomitant]
  7. LIPITOR [Concomitant]
  8. ASPIRIN [Concomitant]

REACTIONS (3)
  - COUGH [None]
  - EPISTAXIS [None]
  - OCULAR HYPERAEMIA [None]
